FAERS Safety Report 14799138 (Version 6)
Quarter: 2018Q3

REPORT INFORMATION
  Report Type: Report from Study
  Country: US (occurrence: US)
  Receive Date: 20180424
  Receipt Date: 20180913
  Transmission Date: 20181010
  Serious: Yes (Hospitalization)
  Sender: FDA-Public Use
  Company Number: PHHO2018US004895

PATIENT
  Age: 9 Year
  Sex: Female
  Weight: 33 kg

DRUGS (40)
  1. SB497115 [Suspect]
     Active Substance: ELTROMBOPAG
     Indication: APLASTIC ANAEMIA
     Dosage: 50 MG, QD
     Route: 048
     Dates: start: 20180328, end: 20180407
  2. FENTANYL. [Concomitant]
     Active Substance: FENTANYL
     Indication: BIOPSY BONE MARROW
     Dosage: 8 UG, PRN
     Route: 042
     Dates: start: 20180323, end: 20180323
  3. METHYLPREDNISOLONE SODIUM SUCCINATE. [Concomitant]
     Active Substance: METHYLPREDNISOLONE SODIUM SUCCINATE
     Indication: PROPHYLAXIS
     Dosage: 15.62 MG, QD
     Route: 042
     Dates: start: 20180329, end: 20180402
  4. ONDANSETRON [Concomitant]
     Active Substance: ONDANSETRON
     Indication: VOMITING
  5. ACYCLOVIR. [Concomitant]
     Active Substance: ACYCLOVIR
     Indication: PROPHYLAXIS
     Dosage: 400 MG, BID
     Route: 048
     Dates: start: 20180405, end: 20180411
  6. VORICONAZOLE. [Suspect]
     Active Substance: VORICONAZOLE
     Indication: PRODUCT USED FOR UNKNOWN INDICATION
     Route: 065
  7. NEORAL [Suspect]
     Active Substance: CYCLOSPORINE
     Dosage: 100 MG, BID
     Route: 048
     Dates: start: 20180402, end: 20180406
  8. NEORAL [Suspect]
     Active Substance: CYCLOSPORINE
     Dosage: 100 MG, BID
     Route: 048
     Dates: start: 20180512
  9. MOMETASONE FUROATE. [Concomitant]
     Active Substance: MOMETASONE FUROATE
     Indication: SEASONAL ALLERGY
     Dosage: 50 UG, QD
     Route: 045
     Dates: start: 20111024
  10. NEUPOGEN [Concomitant]
     Active Substance: FILGRASTIM
     Indication: PANCYTOPENIA
     Dosage: 0.55 ML, QD
     Route: 058
     Dates: start: 20180131, end: 20180411
  11. PREDNISONE. [Concomitant]
     Active Substance: PREDNISONE
     Dosage: 30 MG, BID
     Route: 048
     Dates: end: 20180411
  12. ZOSYN [Concomitant]
     Active Substance: PIPERACILLIN SODIUM\TAZOBACTAM SODIUM
     Indication: STAPHYLOCOCCAL INFECTION
     Dosage: 3.375 MG, QD
     Route: 042
     Dates: start: 20180404, end: 20180404
  13. AMLODIPINE [Concomitant]
     Active Substance: AMLODIPINE BESYLATE
     Indication: HYPERTENSION
     Dosage: 2.5 MG, QD
     Route: 048
     Dates: start: 20180514
  14. SB497115 [Suspect]
     Active Substance: ELTROMBOPAG
     Dosage: 75 UNK, UNK
     Route: 048
     Dates: start: 20180525
  15. NEORAL [Suspect]
     Active Substance: CYCLOSPORINE
     Dosage: 75 MG, BID
     Route: 048
     Dates: start: 20180421, end: 20180430
  16. CETIRIZINE HYDROCHLORIDE. [Concomitant]
     Active Substance: CETIRIZINE HYDROCHLORIDE
     Indication: SEASONAL ALLERGY
     Dosage: 4.93 ML, QD
     Route: 048
  17. GRANIX [Concomitant]
     Active Substance: TBO-FILGRASTIM
     Indication: PRODUCT USED FOR UNKNOWN INDICATION
     Dosage: 180 UG, QD
     Route: 058
     Dates: start: 20180328, end: 20180405
  18. RANITIDINE. [Concomitant]
     Active Substance: RANITIDINE
     Indication: ABDOMINAL DISCOMFORT
     Dosage: 75 MG, PRN
     Route: 048
     Dates: start: 20180329, end: 20180402
  19. MAGNESIUM [Concomitant]
     Active Substance: MAGNESIUM
     Indication: HYPOMAGNESAEMIA
     Dosage: 400 MG, BID
     Route: 048
     Dates: start: 20180330, end: 20180331
  20. ACYCLOVIR. [Concomitant]
     Active Substance: ACYCLOVIR
     Indication: STAPHYLOCOCCAL INFECTION
     Dosage: 400 MG, BID
     Route: 048
     Dates: start: 20180504
  21. SB497115 [Suspect]
     Active Substance: ELTROMBOPAG
     Dosage: 25 MG, QD
     Route: 048
     Dates: start: 20180404, end: 20180411
  22. NEORAL [Suspect]
     Active Substance: CYCLOSPORINE
     Indication: APLASTIC ANAEMIA
     Dosage: 100 MG, Q12H
     Route: 048
     Dates: start: 20180329, end: 20180401
  23. NEORAL [Suspect]
     Active Substance: CYCLOSPORINE
     Dosage: 75 MG, BID
     Route: 048
     Dates: start: 20180501, end: 20180511
  24. DIPHENHYDRAMINE. [Concomitant]
     Active Substance: DIPHENHYDRAMINE
     Indication: PROPHYLAXIS
     Dosage: 25 MG, PRN
     Route: 048
     Dates: start: 20180323, end: 20180323
  25. PREDNISONE. [Concomitant]
     Active Substance: PREDNISONE
     Indication: SERUM SICKNESS
     Dosage: 32 MG, BID
     Route: 042
     Dates: start: 20180401, end: 20180403
  26. PREDNISONE. [Concomitant]
     Active Substance: PREDNISONE
     Dosage: 32 MG, BID
     Route: 042
     Dates: end: 20180409
  27. AMOXICILLIN. [Concomitant]
     Active Substance: AMOXICILLIN
     Indication: PRODUCT USED FOR UNKNOWN INDICATION
     Dosage: 500 MG, TID
     Route: 048
     Dates: start: 20180411, end: 20180418
  28. ANTITHYMOCYTE IMMUNOGLOBULIN [Suspect]
     Active Substance: THYMOCYTE IMMUNE GLOBULIN NOS
     Indication: PRODUCT USED FOR UNKNOWN INDICATION
     Dosage: UNK
     Route: 065
  29. FLUTICASONE. [Concomitant]
     Active Substance: FLUTICASONE
     Indication: SEASONAL ALLERGY
     Dosage: 50 UG, QD
     Route: 045
     Dates: start: 20180328, end: 20180411
  30. POSACONAZOLE [Concomitant]
     Active Substance: POSACONAZOLE
     Indication: ANTIFUNGAL PROPHYLAXIS
     Dosage: 300 MG, QD
     Route: 048
     Dates: start: 20180411
  31. PENTAMIDINE [Concomitant]
     Active Substance: PENTAMIDINE
     Indication: STAPHYLOCOCCAL INFECTION
     Dosage: 300 MG, QMO
     Route: 055
     Dates: start: 20180511
  32. NEORAL [Suspect]
     Active Substance: CYCLOSPORINE
     Dosage: 75 MG, BID
     Route: 048
     Dates: start: 20180407, end: 20180413
  33. VANCOMYCIN [Concomitant]
     Active Substance: VANCOMYCIN
     Indication: STAPHYLOCOCCAL INFECTION
     Dosage: 477 MG, TID
     Route: 042
     Dates: start: 20180404, end: 20180405
  34. SB497115 [Suspect]
     Active Substance: ELTROMBOPAG
     Dosage: 50 MG, QD
     Route: 048
     Dates: start: 20180412, end: 20180525
  35. URSODIOL. [Concomitant]
     Active Substance: URSODIOL
     Indication: LIVER FUNCTION TEST INCREASED
     Dosage: 300 MG, BID
     Route: 048
     Dates: start: 20180406
  36. MICAFUNGIN [Concomitant]
     Active Substance: MICAFUNGIN
     Indication: FUNGAL DISEASE CARRIER
     Dosage: 48 MG, QD
     Route: 042
     Dates: start: 20180409, end: 20180410
  37. NEORAL [Suspect]
     Active Substance: CYCLOSPORINE
     Dosage: 100 MG, BID
     Route: 048
     Dates: start: 20180414, end: 20180420
  38. HEPARIN [Concomitant]
     Active Substance: HEPARIN SODIUM
     Indication: APLASTIC ANAEMIA
     Dosage: 50 IU, PRN
     Route: 042
     Dates: start: 20180326, end: 20180326
  39. ONDANSETRON [Concomitant]
     Active Substance: ONDANSETRON
     Indication: NAUSEA
     Dosage: 4 MG, PRN
     Route: 042
     Dates: start: 20180329, end: 20180401
  40. POLYETHYLENE GLYCOL 3350. [Concomitant]
     Active Substance: POLYETHYLENE GLYCOL 3350
     Indication: CONSTIPATION
     Dosage: 8.5 G, PRN
     Route: 048
     Dates: start: 20180330, end: 20180407

REACTIONS (4)
  - Hypoxia [Recovered/Resolved]
  - Liver function test increased [Recovered/Resolved]
  - Drug level increased [Recovered/Resolved]
  - Staphylococcal infection [Not Recovered/Not Resolved]

NARRATIVE: CASE EVENT DATE: 20180330
